FAERS Safety Report 9268844 (Version 1)
Quarter: 2013Q2

REPORT INFORMATION
  Report Type: Spontaneous
  Country: US (occurrence: US)
  Receive Date: 20130502
  Receipt Date: 20130502
  Transmission Date: 20140414
  Serious: No
  Sender: FDA-Public Use
  Company Number: US-ASTRAZENECA-2013SE24163

PATIENT
  Sex: Male

DRUGS (5)
  1. SEROQUEL XR [Suspect]
     Indication: SLEEP DISORDER
     Route: 048
     Dates: start: 20130408
  2. SSRI [Concomitant]
     Indication: SLEEP DISORDER
  3. SSRI [Concomitant]
     Indication: ANXIETY
  4. PSYTO [Concomitant]
     Indication: TINNITUS
  5. ADDERALL [Concomitant]

REACTIONS (2)
  - Tremor [Unknown]
  - Off label use [Unknown]
